FAERS Safety Report 21935376 (Version 1)
Quarter: 2023Q1

REPORT INFORMATION
  Report Type: Spontaneous
  Country: US (occurrence: US)
  Receive Date: 20230201
  Receipt Date: 20230201
  Transmission Date: 20230418
  Serious: No
  Sender: FDA-Public Use
  Company Number: US-UNITED THERAPEUTICS-UNT-2023-002725

PATIENT
  Age: 39 Year
  Sex: Female
  Weight: 95.238 kg

DRUGS (6)
  1. REMODULIN [Suspect]
     Active Substance: TREPROSTINIL
     Indication: Pulmonary arterial hypertension
     Dosage: 0.021 ?G/KG (SELF-FILL CASSETTE WITH 2.2 ML; RATE OF 24 MCL PER HOUR), CONTINUING
     Route: 058
  2. REMODULIN [Suspect]
     Active Substance: TREPROSTINIL
     Dosage: UNK (SELF-FILL CASSETTE WITH 2.5 ML; RATE OF 28 MCL PER HOUR), CONTINUING
     Route: 058
     Dates: start: 20230127
  3. REMODULIN [Suspect]
     Active Substance: TREPROSTINIL
     Dosage: UNK, CONTINUING
     Route: 058
     Dates: start: 20220919
  4. OPSUMIT [Concomitant]
     Active Substance: MACITENTAN
     Indication: Product used for unknown indication
     Route: 065
  5. UPTRAVI [Concomitant]
     Active Substance: SELEXIPAG
     Indication: Product used for unknown indication
     Route: 065
  6. ADCIRCA [Concomitant]
     Active Substance: TADALAFIL
     Indication: Pulmonary arterial hypertension
     Route: 065

REACTIONS (3)
  - COVID-19 [Unknown]
  - Dizziness [Unknown]
  - Device leakage [Unknown]

NARRATIVE: CASE EVENT DATE: 20230121
